FAERS Safety Report 24435574 (Version 2)
Quarter: 2024Q4

REPORT INFORMATION
  Report Type: Spontaneous
  Country: EG (occurrence: EG)
  Receive Date: 20241015
  Receipt Date: 20241220
  Transmission Date: 20250115
  Serious: Yes (Other)
  Sender: NOVO NORDISK
  Company Number: EG-NOVOPROD-1295747

PATIENT
  Age: 250 Month
  Sex: Female
  Weight: 59 kg

DRUGS (3)
  1. ACTRAPID [Suspect]
     Active Substance: INSULIN HUMAN
     Indication: Type 1 diabetes mellitus
     Dosage: 23 IU, QD(7U BEFORE BREAKFAST, 10U BEFORE LUNCH AND 6U BEFORE DINNER)
     Route: 058
  2. TOUJEO [Concomitant]
     Active Substance: INSULIN GLARGINE
     Indication: Type 1 diabetes mellitus
     Dosage: 20 IU, QD
     Route: 058
  3. ACTRAPID [Suspect]
     Active Substance: INSULIN HUMAN
     Indication: Type 1 diabetes mellitus
     Dosage: 23 IU, QD(7U BEFORE BREAKFAST, 10U BEFORE LUNCH AND 6U BEFORE DINNER)
     Route: 058

REACTIONS (3)
  - Nephrolithiasis [Not Recovered/Not Resolved]
  - Gastritis [Not Recovered/Not Resolved]
  - Hyperglycaemia [Recovered/Resolved]
